FAERS Safety Report 8329787-2 (Version None)
Quarter: 2012Q2

REPORT INFORMATION
  Report Type: 
  Country: None (occurrence: None)
  Receive Date: 20120502
  Receipt Date: 20091021
  Transmission Date: 20120825
  Serious: No
  Sender: FDA-Public Use
  Company Number: US-TEVA-2009011782

PATIENT
  Sex: Female
  Weight: 72.64 kg

DRUGS (2)
  1. NUVIGIL [Suspect]
     Indication: SOMNOLENCE
     Dosage: 250 MILLIGRAM;
     Route: 048
     Dates: start: 20091012
  2. NUVIGIL [Suspect]
     Indication: ATTENTION DEFICIT/HYPERACTIVITY DISORDER

REACTIONS (1)
  - DRUG EFFECT INCREASED [None]
